FAERS Safety Report 17659632 (Version 4)
Quarter: 2020Q3

REPORT INFORMATION
  Report Type: Spontaneous
  Country: US (occurrence: US)
  Receive Date: 20200413
  Receipt Date: 20200708
  Transmission Date: 20201102
  Serious: No
  Sender: FDA-Public Use
  Company Number: US-BIOGEN-2020BI00850299

PATIENT
  Age: 56 Year
  Sex: Female

DRUGS (3)
  1. TECFIDERA [Suspect]
     Active Substance: DIMETHYL FUMARATE
     Route: 065
     Dates: start: 20200625
  2. TECFIDERA [Suspect]
     Active Substance: DIMETHYL FUMARATE
     Dosage: MAINTENENCE DOSE
     Route: 048
     Dates: start: 20200310
  3. TECFIDERA [Suspect]
     Active Substance: DIMETHYL FUMARATE
     Indication: MULTIPLE SCLEROSIS
     Dosage: STARTING DOSE
     Route: 048
     Dates: start: 20200303, end: 20200310

REACTIONS (12)
  - Swelling face [Unknown]
  - Pyrexia [Unknown]
  - Abdominal distension [Unknown]
  - Vomiting [Not Recovered/Not Resolved]
  - Asthenia [Not Recovered/Not Resolved]
  - Gait disturbance [Recovered/Resolved]
  - Abdominal pain upper [Not Recovered/Not Resolved]
  - Nausea [Recovered/Resolved]
  - Flushing [Not Recovered/Not Resolved]
  - Diarrhoea [Unknown]
  - Muscular weakness [Recovered/Resolved]
  - White blood cell count decreased [Unknown]

NARRATIVE: CASE EVENT DATE: 20200314
